FAERS Safety Report 5425585-8 (Version None)
Quarter: 2007Q3

REPORT INFORMATION
  Report Type: 
  Country: None (occurrence: None)
  Receive Date: 20070824
  Receipt Date: 20070814
  Transmission Date: 20080115
  Serious: Yes (Death)
  Sender: FDA-Public Use
  Company Number: US-PFIZER INC-2007063384

PATIENT
  Sex: Male
  Weight: 51 kg

DRUGS (5)
  1. SUTENT [Suspect]
     Indication: MALIGNANT ASCITES
     Route: 048
     Dates: start: 20070724, end: 20070731
  2. PROTONIX [Concomitant]
     Route: 048
  3. REGLAN [Concomitant]
     Route: 048
     Dates: start: 20070717
  4. PAXIL [Concomitant]
     Route: 048
     Dates: start: 20070724
  5. ATIVAN [Concomitant]
     Route: 048
     Dates: start: 20070717

REACTIONS (1)
  - HEPATIC CANCER METASTATIC [None]
